FAERS Safety Report 18557337 (Version 2)
Quarter: 2020Q4

REPORT INFORMATION
  Report Type: Report from Study
  Country: US (occurrence: US)
  Receive Date: 20201129
  Receipt Date: 20201209
  Transmission Date: 20210114
  Serious: Yes (Other)
  Sender: FDA-Public Use
  Company Number: US-SUNOVION-2020SUN003530

PATIENT
  Age: 71 Year
  Sex: Male
  Weight: 97.96 kg

DRUGS (3)
  1. KYNMOBI [Suspect]
     Active Substance: APOMORPHINE HYDROCHLORIDE
     Dosage: 10 MG, SINGLE
     Route: 060
  2. KYNMOBI [Suspect]
     Active Substance: APOMORPHINE HYDROCHLORIDE
     Indication: PARKINSON^S DISEASE
     Dosage: 15 MG
     Route: 048
     Dates: start: 20201124, end: 20201124
  3. KYNMOBI [Suspect]
     Active Substance: APOMORPHINE HYDROCHLORIDE
     Dosage: 15 MG, SINGLE
     Route: 060
     Dates: start: 20201120, end: 20201120

REACTIONS (12)
  - Pallor [Unknown]
  - Fall [Unknown]
  - Hyperhidrosis [Recovered/Resolved]
  - Cold sweat [Recovered/Resolved]
  - Blood pressure decreased [Recovered/Resolved]
  - Syncope [Unknown]
  - Dyspepsia [Recovered/Resolved]
  - Yawning [Recovered/Resolved]
  - Drug hypersensitivity [Unknown]
  - Nausea [Recovered/Resolved]
  - Skin discolouration [Unknown]
  - Dizziness [Recovered/Resolved]

NARRATIVE: CASE EVENT DATE: 20201120
